FAERS Safety Report 18832946 (Version 1)
Quarter: 2021Q1

REPORT INFORMATION
  Report Type: Report from Study
  Country: None (occurrence: NL)
  Receive Date: 20210201
  Receipt Date: 20210201
  Transmission Date: 20210419
  Serious: Yes (Hospitalization, Other)
  Sender: FDA-Public Use
  Company Number: NL-ABBVIE-21K-114-3755137-00

PATIENT
  Sex: Male

DRUGS (4)
  1. MACROGOL [Concomitant]
     Active Substance: POLYETHYLENE GLYCOLS
     Indication: ABNORMAL FAECES
     Route: 048
  2. DUODOPA [Suspect]
     Active Substance: CARBIDOPA\LEVODOPA
  3. DUODOPA [Suspect]
     Active Substance: CARBIDOPA\LEVODOPA
     Indication: PARKINSON^S DISEASE
     Dosage: MD: 7.7ML; CD: 3.8ML/H; ED: 3.0ML
     Route: 050
     Dates: start: 20160114
  4. TERRACORTRIL [Concomitant]
     Indication: FIBROMA

REACTIONS (2)
  - Unevaluable event [Not Recovered/Not Resolved]
  - Intussusception [Not Recovered/Not Resolved]

NARRATIVE: CASE EVENT DATE: 20210126
